FAERS Safety Report 4630973-3 (Version None)
Quarter: 2005Q2

REPORT INFORMATION
  Report Type: 
  Country: None (occurrence: None)
  Receive Date: 20050406
  Receipt Date: 20050406
  Transmission Date: 20051028
  Serious: Yes (Hospitalization)
  Sender: FDA-Public Use
  Company Number: None

PATIENT
  Age: 65 Year
  Sex: Female

DRUGS (14)
  1. BENICAR [Suspect]
     Indication: HYPERTENSION
     Dosage: 20 MG ONCE A DAY ORAL
     Route: 048
     Dates: start: 20050106, end: 20050128
  2. NEURONTIN [Concomitant]
  3. OXYCONTIN [Concomitant]
  4. CELEXA [Concomitant]
  5. PREDNISONE [Concomitant]
  6. ACIPHEX [Concomitant]
  7. SINGULAIR [Concomitant]
  8. PRAVACHOL [Concomitant]
  9. LASIX [Concomitant]
  10. ASPIRIN [Concomitant]
  11. SEREVENT [Concomitant]
  12. FLOVENT [Concomitant]
  13. COMBIVENT [Concomitant]
  14. TIAZAC [Concomitant]

REACTIONS (3)
  - BLOOD CREATININE INCREASED [None]
  - BLOOD POTASSIUM INCREASED [None]
  - FEELING ABNORMAL [None]
